FAERS Safety Report 5217915-7 (Version None)
Quarter: 2006Q4

REPORT INFORMATION
  Report Type: 
  Country: None (occurrence: None)
  Receive Date: 20061130
  Receipt Date: 20060802
  Transmission Date: 20070319
  Serious: Yes (Other)
  Sender: FDA-Public Use
  Company Number: US200608000631

PATIENT
  Age: 36 Year
  Sex: Male

DRUGS (5)
  1. ZYPREXA [Suspect]
     Indication: SCHIZOPHRENIA
     Dosage: 20 MG,
     Dates: start: 20000101
  2. KLONOPIN [Concomitant]
  3. ZOLOFT [Concomitant]
  4. BUSPAR [Concomitant]
  5. NEURONTIN [Concomitant]

REACTIONS (1)
  - WEIGHT INCREASED [None]
